FAERS Safety Report 4987476-6 (Version None)
Quarter: 2006Q2

REPORT INFORMATION
  Report Type: 
  Country: None (occurrence: None)
  Receive Date: 20060427
  Receipt Date: 20060427
  Transmission Date: 20061013
  Serious: Yes (Other)
  Sender: FDA-Public Use
  Company Number: None

PATIENT
  Age: 27 Year
  Sex: Male

DRUGS (1)
  1. MOXIFLOXACIN HCL [Suspect]

REACTIONS (6)
  - ADVERSE DRUG REACTION [None]
  - ANAPHYLACTIC REACTION [None]
  - ANGIONEUROTIC OEDEMA [None]
  - ARRHYTHMIA [None]
  - PALPITATIONS [None]
  - PARAESTHESIA ORAL [None]
